FAERS Safety Report 7922674-0 (Version None)
Quarter: 2011Q4

REPORT INFORMATION
  Report Type: 
  Country: None (occurrence: None)
  Receive Date: 20111117
  Receipt Date: 20110202
  Transmission Date: 20120403
  Serious: No
  Sender: FDA-Public Use
  Company Number: US-ALLERGAN-1101479US

PATIENT
  Age: 80 Year
  Sex: Female

DRUGS (6)
  1. GRAPE SEED OIL [Concomitant]
     Indication: PHYTOTHERAPY
     Dosage: UNK
  2. COMBIGAN [Suspect]
     Indication: INTRAOCULAR PRESSURE INCREASED
     Dosage: 1 GTT, BID
     Route: 047
     Dates: start: 20101001
  3. LOVAZA [Concomitant]
     Dosage: UNK
  4. GLUCOSAMINE [Concomitant]
     Dosage: UNK
  5. UNSPECIFIED EYE CAPS [Concomitant]
     Indication: PHYTOTHERAPY
     Dosage: UNK
  6. VITAMIN D [Concomitant]
     Dosage: UNK

REACTIONS (1)
  - DIZZINESS [None]
